FAERS Safety Report 10717072 (Version 3)
Quarter: 2015Q1

REPORT INFORMATION
  Report Type: Spontaneous
  Country: US (occurrence: US)
  Receive Date: 20150116
  Receipt Date: 20150303
  Transmission Date: 20150721
  Serious: No
  Sender: FDA-Public Use
  Company Number: US-PFIZER INC-2015016956

PATIENT
  Age: 51 Year
  Sex: Male
  Weight: 110 kg

DRUGS (3)
  1. INLYTA [Suspect]
     Active Substance: AXITINIB
     Indication: METASTATIC RENAL CELL CARCINOMA
     Dosage: 17 MG, 1X/DAY (10G AM/7G PM)
     Route: 048
     Dates: start: 201408
  2. INLYTA [Suspect]
     Active Substance: AXITINIB
     Dosage: 5 MG, 2X/DAY
     Route: 048
  3. INLYTA [Suspect]
     Active Substance: AXITINIB
     Dosage: 10 MG, 2X/DAY
     Route: 048

REACTIONS (7)
  - Decreased appetite [Unknown]
  - Diarrhoea [Unknown]
  - Hypertension [Unknown]
  - Proteinuria [Unknown]
  - Rash [Unknown]
  - Painful defaecation [Unknown]
  - Haemorrhoids [Unknown]

NARRATIVE: CASE EVENT DATE: 201410
